FAERS Safety Report 9548397 (Version 1)
Quarter: 2013Q2

REPORT INFORMATION
  Report Type: Spontaneous
  Country: US (occurrence: None)
  Receive Date: 20130606
  Receipt Date: 20130606
  Transmission Date: 20140414
  Serious: Yes (Other)
  Sender: FDA-Public Use
  Company Number: 1304USA014968

PATIENT
  Age: 62 Year
  Sex: Female

DRUGS (1)
  1. ZIOPTAN [Suspect]
     Indication: INTRAOCULAR PRESSURE TEST
     Route: 047
     Dates: start: 20130301

REACTIONS (4)
  - Arthralgia [None]
  - Myalgia [None]
  - Ocular hyperaemia [None]
  - Eye irritation [None]
